FAERS Safety Report 10439661 (Version 1)
Quarter: 2014Q3

REPORT INFORMATION
  Report Type: Spontaneous
  Country: US (occurrence: US)
  Receive Date: 20140908
  Receipt Date: 20140908
  Transmission Date: 20150326
  Serious: Yes (Other)
  Sender: FDA-Public Use
  Company Number: US-PFIZER INC-2014244784

PATIENT
  Age: 49 Year
  Sex: Female
  Weight: 59.41 kg

DRUGS (5)
  1. LYRICA [Suspect]
     Active Substance: PREGABALIN
     Indication: PAIN
     Dosage: 150 MG, 3X/DAY
     Dates: start: 2005
  2. TIZANIDINE [Concomitant]
     Active Substance: TIZANIDINE
     Indication: PAIN
     Dosage: HALF A TABLET OF 4MG THREE TIMES DAILY
  3. TIZANIDINE [Concomitant]
     Active Substance: TIZANIDINE
     Indication: SWELLING
  4. VENLAFAXINE [Concomitant]
     Active Substance: VENLAFAXINE HYDROCHLORIDE
     Indication: HORMONE LEVEL ABNORMAL
     Dosage: 37.5 MG, 1X/DAY
  5. VENLAFAXINE [Concomitant]
     Active Substance: VENLAFAXINE HYDROCHLORIDE
     Indication: PAIN

REACTIONS (2)
  - Arteriosclerosis [Unknown]
  - Myocardial infarction [Recovering/Resolving]

NARRATIVE: CASE EVENT DATE: 2011
